FAERS Safety Report 4756327-7 (Version None)
Quarter: 2005Q3

REPORT INFORMATION
  Report Type: 
  Country: None (occurrence: None)
  Receive Date: 20050830
  Receipt Date: 20050601
  Transmission Date: 20060218
  Serious: No
  Sender: FDA-Public Use
  Company Number: US-GLAXOSMITHKLINE-A0560745A

PATIENT
  Sex: Female

DRUGS (4)
  1. WELLBUTRIN XL [Suspect]
     Indication: DEPRESSION
     Dosage: 150MG PER DAY
     Route: 048
     Dates: start: 20050301
  2. XANAX [Concomitant]
  3. ACTONEL [Concomitant]
  4. ZYRTEC [Concomitant]

REACTIONS (4)
  - AGITATION [None]
  - ASTHENIA [None]
  - FATIGUE [None]
  - TREMOR [None]
